FAERS Safety Report 20052224 (Version 1)
Quarter: 2021Q4

REPORT INFORMATION
  Report Type: Spontaneous
  Country: VE (occurrence: VE)
  Receive Date: 20211110
  Receipt Date: 20211110
  Transmission Date: 20220303
  Serious: Yes (Hospitalization, Other)
  Sender: FDA-Public Use
  Company Number: VE-LUPIN PHARMACEUTICALS INC.-2021-21851

PATIENT
  Age: 41 Year
  Sex: Female

DRUGS (2)
  1. METHYLPREDNISOLONE [Suspect]
     Active Substance: METHYLPREDNISOLONE
     Indication: Endocrine ophthalmopathy
     Dosage: UNK (CUMULATIVE DOSE OF 9.5 GRAMS)
     Route: 042
  2. METHYLPREDNISOLONE [Suspect]
     Active Substance: METHYLPREDNISOLONE
     Dosage: 1000 MILLIGRAM
     Route: 042

REACTIONS (3)
  - Drug ineffective for unapproved indication [Unknown]
  - Pituitary-dependent Cushing^s syndrome [Unknown]
  - Off label use [Unknown]
